FAERS Safety Report 12354464 (Version 2)
Quarter: 2016Q2

REPORT INFORMATION
  Report Type: Spontaneous
  Country: JP (occurrence: JP)
  Receive Date: 20160511
  Receipt Date: 20160614
  Transmission Date: 20160815
  Serious: Yes (Hospitalization)
  Sender: FDA-Public Use
  Company Number: JP-GLENMARK PHARMACEUTICALS INC, USA.-2016GMK022783

PATIENT

DRUGS (3)
  1. BENZYLPENICILLIN [Concomitant]
     Active Substance: PENICILLIN G
     Indication: SURGERY
     Dosage: 400 MEGA UNITS ? 6 PER DAY
  2. CEFOPERAZONE SODIUM AND SULBACTAM SODIUM [Suspect]
     Active Substance: CEFOPERAZONE SODIUM\SULBACTAM SODIUM
     Indication: SURGERY
     Dosage: 1 G, BID
  3. LEVOFLOXACIN. [Suspect]
     Active Substance: LEVOFLOXACIN
     Indication: SURGERY
     Dosage: 500 MG, QD

REACTIONS (1)
  - Endocarditis enterococcal [Unknown]

NARRATIVE: CASE EVENT DATE: 20150225
